FAERS Safety Report 5289905-X (Version None)
Quarter: 2007Q1

REPORT INFORMATION
  Report Type: 
  Country: None (occurrence: None)
  Receive Date: 20070116
  Receipt Date: 20060328
  Transmission Date: 20070707
  Serious: Yes (Hospitalization, Other)
  Sender: FDA-Public Use
  Company Number: HQWYE145207FEB05

PATIENT
  Age: 60 Year
  Sex: Female
  Weight: 90.8 kg

DRUGS (7)
  1. PREMPRO [Suspect]
     Indication: MENOPAUSE
     Dosage: ORAL
     Route: 048
     Dates: start: 19990101, end: 20020101
  2. ATIVAN [Concomitant]
  3. CLARITIN [Concomitant]
  4. VIOXX [Concomitant]
  5. PAXIL [Concomitant]
  6. CELEXA [Concomitant]
  7. TOPRAL (SULTOPRIDE) [Concomitant]

REACTIONS (1)
  - BREAST CANCER [None]
